FAERS Safety Report 8054313-5 (Version None)
Quarter: 2012Q1

REPORT INFORMATION
  Report Type: 
  Country: None (occurrence: None)
  Receive Date: 20120118
  Receipt Date: 20120112
  Transmission Date: 20120608
  Serious: Yes (Other)
  Sender: FDA-Public Use
  Company Number: PHEH2007US13316

PATIENT
  Sex: Male

DRUGS (38)
  1. FLEXERIL [Concomitant]
  2. CASODEX [Concomitant]
     Dosage: 50 MG 3/4
     Dates: start: 20050517, end: 20050823
  3. MEGACE [Concomitant]
     Dosage: 40 MG BID 4/6
     Dates: start: 20050406, end: 20051108
  4. PERCOCET [Concomitant]
     Indication: PAIN
     Dosage: 5 / 325 QID PRN
  5. LORTAB [Concomitant]
  6. OXYCODONE HCL AND ACETAMINOPHEN [Concomitant]
     Dosage: 5 MG-325 MG
     Route: 048
     Dates: start: 20050617, end: 20060414
  7. MEGACE [Concomitant]
     Dosage: 40 MG BID 1/4
     Dates: start: 20060206, end: 20060801
  8. METOPROLOL [Concomitant]
  9. FLUZONE [Concomitant]
     Dosage: 0.5 ML, UNK
  10. LUPRON [Concomitant]
  11. CASODEX [Concomitant]
     Dosage: 50 MG 1/3
     Dates: start: 20050823, end: 20051014
  12. RANITIDINE [Concomitant]
  13. CYTOXAN [Concomitant]
  14. DURAGESIC-100 [Concomitant]
  15. ZOLADEX [Concomitant]
     Dosage: 10.8 MG, UNK
  16. HYDROCHLOROTHIAZIDE [Concomitant]
     Dosage: 25 MG 4/4
     Dates: start: 20050428, end: 20060421
  17. HYDROCHLOROTHIAZIDE [Concomitant]
     Dosage: 25 MG 3/4
     Dates: start: 20060421, end: 20070421
  18. MEGACE [Concomitant]
     Dosage: 40 MG BID 3/4
     Dates: start: 20051108, end: 20060206
  19. AREDIA [Suspect]
     Dates: start: 20020101, end: 20040501
  20. LISINOPRIL [Concomitant]
     Dosage: 20 MG 2/4
     Route: 048
     Dates: start: 20050428, end: 20051107
  21. METHADONE HCL [Concomitant]
  22. PERIDEX [Concomitant]
  23. VINCRISTINE + ADRIAMYCIN + DEXAMETHASONE [Concomitant]
     Dates: end: 20020101
  24. IBUPROFEN [Concomitant]
  25. ANTIBIOTICS [Concomitant]
  26. CASODEX [Concomitant]
     Dosage: 50 MG 0/3
     Dates: start: 20051014, end: 20051129
  27. LISINOPRIL [Concomitant]
     Dosage: 20 MG 0/4
     Dates: start: 20051107, end: 20060228
  28. OXYCONTIN [Concomitant]
  29. AUGMENTIN '125' [Concomitant]
     Dosage: 875 MG, BID
  30. EFFEXOR [Concomitant]
  31. ORAMORPH SR [Concomitant]
  32. FENTANYL [Concomitant]
     Dosage: 50 UG, UNK
     Dates: start: 20050617, end: 20060414
  33. MOTRIN [Concomitant]
     Dosage: 600 MG 1 QID PRN
  34. ZOMETA [Suspect]
     Indication: METASTASES TO BONE
     Dates: end: 20060101
  35. NEURONTIN [Concomitant]
  36. DECADRON [Concomitant]
     Dosage: 40 MG, UNK
     Dates: start: 20020101, end: 20070801
  37. REVLIMID [Concomitant]
     Dosage: 25 MG, QD
  38. TERBINAFINE HCL [Concomitant]

REACTIONS (54)
  - AORTIC ARTERIOSCLEROSIS [None]
  - PAIN IN JAW [None]
  - EMPHYSEMA [None]
  - PROSTATE CANCER METASTATIC [None]
  - MUSCLE SWELLING [None]
  - AORTIC VALVE STENOSIS [None]
  - LEFT VENTRICULAR HYPERTROPHY [None]
  - COMPRESSION FRACTURE [None]
  - VASCULAR CALCIFICATION [None]
  - AORTIC VALVE INCOMPETENCE [None]
  - BONE LOSS [None]
  - BACK PAIN [None]
  - DIZZINESS [None]
  - MITRAL VALVE INCOMPETENCE [None]
  - GASTROINTESTINAL HAEMORRHAGE [None]
  - ONYCHOMYCOSIS [None]
  - NEUROPATHY PERIPHERAL [None]
  - INFECTION [None]
  - KYPHOSIS [None]
  - LUNG NEOPLASM [None]
  - ANAEMIA [None]
  - ERECTILE DYSFUNCTION [None]
  - BONE PAIN [None]
  - ERYTHEMA [None]
  - CONSTIPATION [None]
  - MUSCULOSKELETAL PAIN [None]
  - MITRAL VALVE CALCIFICATION [None]
  - DEFORMITY [None]
  - HYPERTENSION [None]
  - HAEMATOCHEZIA [None]
  - POOR QUALITY SLEEP [None]
  - CELLULITIS [None]
  - DIVERTICULUM [None]
  - AXILLARY PAIN [None]
  - GASTROOESOPHAGEAL REFLUX DISEASE [None]
  - DIARRHOEA [None]
  - DYSPNOEA [None]
  - NEPHROLITHIASIS [None]
  - TRICUSPID VALVE INCOMPETENCE [None]
  - OSTEONECROSIS OF JAW [None]
  - INSOMNIA [None]
  - TENDERNESS [None]
  - CARDIAC FAILURE CONGESTIVE [None]
  - ARTERIOSCLEROSIS [None]
  - BONE DISORDER [None]
  - SYNCOPE [None]
  - CYST [None]
  - HEADACHE [None]
  - CHRONIC SINUSITIS [None]
  - PRIMARY SEQUESTRUM [None]
  - SKIN SWELLING [None]
  - POLLAKIURIA [None]
  - LEFT ATRIAL DILATATION [None]
  - OSTEOARTHRITIS [None]
